FAERS Safety Report 5199614-3 (Version None)
Quarter: 2007Q1

REPORT INFORMATION
  Report Type: 
  Country: None (occurrence: None)
  Receive Date: 20070102
  Receipt Date: 20070102
  Transmission Date: 20070707
  Serious: Yes (Hospitalization, Disabling)
  Sender: FDA-Public Use
  Company Number: None

PATIENT
  Age: 58 Year
  Sex: Male
  Weight: 66 kg

DRUGS (6)
  1. NAFCILLIN SODIUM [Suspect]
     Indication: LOCALISED INFECTION
     Dosage: 2GM Q6H IV
     Route: 042
     Dates: start: 20060915, end: 20060920
  2. NAFCILLIN SODIUM [Suspect]
     Indication: STAPHYLOCOCCAL INFECTION
     Dosage: 2GM Q6H IV
     Route: 042
     Dates: start: 20060915, end: 20060920
  3. MORPHINE [Concomitant]
  4. MORPHINE [Concomitant]
  5. TACROLIMUS [Concomitant]
  6. ACETAMINOPHEN [Concomitant]

REACTIONS (3)
  - BLOOD BILIRUBIN INCREASED [None]
  - HAEMATOCRIT DECREASED [None]
  - HAEMOLYSIS [None]
